FAERS Safety Report 5140735-9 (Version None)
Quarter: 2006Q4

REPORT INFORMATION
  Report Type: 
  Country: None (occurrence: None)
  Receive Date: 20061025
  Receipt Date: 20061010
  Transmission Date: 20070319
  Serious: Yes (Hospitalization)
  Sender: FDA-Public Use
  Company Number: 2006RR-04094

PATIENT
  Age: 35 Year
  Sex: Female

DRUGS (11)
  1. METFORMIN (METFORMIN HYDROCHLORIDE) UNKNOWN [Suspect]
     Indication: DIABETES MELLITUS
     Dosage: 500 MG, BID, ORAL
     Route: 048
  2. ALCOHOL [Concomitant]
  3. CALCIUM [Concomitant]
  4. CIMETIDINE [Concomitant]
  5. FERROUS SULPHATE (FERROUS SULFATE) [Concomitant]
  6. GLYBURIDE [Concomitant]
  7. ISONIAZID [Concomitant]
  8. MAGNESIUM TRISILICATE MIXTURE [Concomitant]
  9. NUTRIZYM [Concomitant]
  10. RIFAMPICIN [Concomitant]
  11. VITAMIN D [Concomitant]

REACTIONS (4)
  - ALCOHOL USE [None]
  - COMA [None]
  - HYPOGLYCAEMIA [None]
  - LACTIC ACIDOSIS [None]
